FAERS Safety Report 12231578 (Version 1)
Quarter: 2016Q2

REPORT INFORMATION
  Report Type: Spontaneous
  Country: US (occurrence: US)
  Receive Date: 20160401
  Receipt Date: 20160401
  Transmission Date: 20160815
  Serious: No
  Sender: FDA-Public Use
  Company Number: US-009507513-1604USA000451

PATIENT
  Sex: Female

DRUGS (1)
  1. ZEPATIER [Suspect]
     Active Substance: ELBASVIR\GRAZOPREVIR
     Indication: HEPATITIS C
     Dosage: 1 TABLET (50 MG OF ELBASVIR AND 100 MG OF GRAZOPREVIR)/ ONCE DAILY
     Route: 048

REACTIONS (3)
  - Rash [Unknown]
  - Adenopathy syphilitic [Unknown]
  - Headache [Unknown]
